FAERS Safety Report 10487810 (Version 2)
Quarter: 2014Q4

REPORT INFORMATION
  Report Type: Spontaneous
  Country: US (occurrence: US)
  Receive Date: 20141001
  Receipt Date: 20141112
  Transmission Date: 20150528
  Serious: Yes (Life-Threatening)
  Sender: FDA-Public Use
  Company Number: PHEH2014US019588

PATIENT
  Sex: Female

DRUGS (1)
  1. VIVELLE DOT [Suspect]
     Active Substance: ESTRADIOL
     Indication: PRODUCT USED FOR UNKNOWN INDICATION
     Dosage: 0.075 MG, IN ONE DAY
     Route: 062

REACTIONS (4)
  - Hot flush [Recovering/Resolving]
  - Crying [Recovering/Resolving]
  - Suicidal ideation [Recovering/Resolving]
  - Drug ineffective [Recovering/Resolving]
